FAERS Safety Report 20699587 (Version 4)
Quarter: 2025Q1

REPORT INFORMATION
  Report Type: Spontaneous
  Country: AU (occurrence: AU)
  Receive Date: 20220412
  Receipt Date: 20250313
  Transmission Date: 20250409
  Serious: Yes (Congenital Anomaly, Other)
  Sender: LUPIN
  Company Number: None

PATIENT

DRUGS (2)
  1. LEVETIRACETAM [Suspect]
     Active Substance: LEVETIRACETAM
     Indication: Product used for unknown indication
  2. VALPROIC ACID [Suspect]
     Active Substance: VALPROIC ACID
     Indication: Product used for unknown indication
     Dosage: 1200 MG, QD

REACTIONS (2)
  - Renal fusion anomaly [Unknown]
  - Foetal exposure during pregnancy [Unknown]
